FAERS Safety Report 15217053 (Version 1)
Quarter: 2018Q3

REPORT INFORMATION
  Report Type: Spontaneous
  Country: DK (occurrence: DK)
  Receive Date: 20180730
  Receipt Date: 20180730
  Transmission Date: 20181010
  Serious: Yes (Disabling)
  Sender: FDA-Public Use
  Company Number: PHHY2018DK056935

PATIENT
  Age: 70 Year
  Sex: Female

DRUGS (6)
  1. BONYL [Concomitant]
     Active Substance: NAPROXEN
     Indication: PAIN
     Dosage: 1000 MG, QD (STYRKE: 500 MG)
     Route: 048
     Dates: start: 20160407
  2. ALENDRONAT AUROBINDO [Suspect]
     Active Substance: ALENDRONATE SODIUM
     Indication: OSTEOPOROSIS
     Dosage: 70 MG, QW
     Route: 048
     Dates: start: 2014, end: 20170123
  3. ACLASTA [Suspect]
     Active Substance: ZOLEDRONIC ACID
     Indication: OSTEOPOROSIS
     Dosage: 5 MG, Q12MO (STYRKE: 5 MG/100 ML)
     Route: 042
     Dates: start: 20161024, end: 20180104
  4. PANODIL [Concomitant]
     Active Substance: ACETAMINOPHEN
     Indication: PAIN
     Dosage: 2660 MG, QD (STYRKE: 665 MG)
     Route: 048
     Dates: start: 20140306
  5. CORODIL COMP [Concomitant]
     Active Substance: ENALAPRIL MALEATE\HYDROCHLOROTHIAZIDE
     Indication: HYPERTENSION
     Dosage: 0.5 DF, QD (STYRKE: 20+12,5 MG)
     Route: 048
     Dates: start: 20130913
  6. AMLODIPINE [Concomitant]
     Active Substance: AMLODIPINE BESYLATE
     Indication: HYPERTENSION
     Dosage: 5 MG, QD (STYRKE: 5 MG)
     Route: 048
     Dates: start: 20160407

REACTIONS (2)
  - Osteonecrosis of jaw [Not Recovered/Not Resolved]
  - Jaw fistula [Unknown]

NARRATIVE: CASE EVENT DATE: 201708
